FAERS Safety Report 7328284-0 (Version None)
Quarter: 2011Q1

REPORT INFORMATION
  Report Type: 
  Country: None (occurrence: None)
  Receive Date: 20110224
  Receipt Date: 20110224
  Transmission Date: 20110831
  Serious: Yes (Hospitalization)
  Sender: FDA-Public Use
  Company Number: None

PATIENT
  Age: 25 Year
  Sex: Female

DRUGS (2)
  1. CELEXA [Concomitant]
  2. SUMATRIPTAN TABS 9'S 100MG DR REDDY'S [Suspect]
     Indication: MIGRAINE
     Dosage: ONE AT ONSET OF HA MAY REPEAT 1X AFTER 1 OF 2 HRS MAX 200MG/24HR
     Dates: start: 20110201

REACTIONS (4)
  - HEART RATE INCREASED [None]
  - NAUSEA [None]
  - HYPERHIDROSIS [None]
  - THROAT TIGHTNESS [None]
